FAERS Safety Report 6062612-1 (Version None)
Quarter: 2009Q1

REPORT INFORMATION
  Report Type: 
  Country: None (occurrence: None)
  Receive Date: 20090203
  Receipt Date: 20081223
  Transmission Date: 20090719
  Serious: Yes (Other)
  Sender: FDA-Public Use
  Company Number: US-PFIZER INC-2008099019

PATIENT
  Sex: Female

DRUGS (1)
  1. CHANTIX [Suspect]
     Dates: end: 20080101

REACTIONS (8)
  - ASTHMA [None]
  - BIPOLAR DISORDER [None]
  - BONE DENSITY DECREASED [None]
  - DRUG INEFFECTIVE [None]
  - HYPERTENSION [None]
  - PAIN [None]
  - RHEUMATOID ARTHRITIS [None]
  - SUICIDAL IDEATION [None]
